FAERS Safety Report 24683550 (Version 1)
Quarter: 2024Q4

REPORT INFORMATION
  Report Type: Report from Study
  Country: US (occurrence: US)
  Receive Date: 20241201
  Receipt Date: 20241201
  Transmission Date: 20250115
  Serious: Yes (Other)
  Sender: ABBVIE
  Company Number: US-ABBVIE-5966863

PATIENT
  Sex: Female

DRUGS (1)
  1. RINVOQ [Suspect]
     Active Substance: UPADACITINIB
     Indication: Colitis ulcerative
     Dosage: UNIT DOSE: 15 MILLIGRAM
     Route: 048
     Dates: start: 2023

REACTIONS (7)
  - Diplegia [Unknown]
  - Contusion [Unknown]
  - Road traffic accident [Unknown]
  - Muscle spasms [Recovering/Resolving]
  - Hypertension [Not Recovered/Not Resolved]
  - Chronic kidney disease [Not Recovered/Not Resolved]
  - Stress [Unknown]
